FAERS Safety Report 16594244 (Version 3)
Quarter: 2019Q3

REPORT INFORMATION
  Report Type: Spontaneous
  Country: US (occurrence: US)
  Receive Date: 20190718
  Receipt Date: 20190822
  Transmission Date: 20191004
  Serious: No
  Sender: FDA-Public Use
  Company Number: US-PFIZER INC-2019000645

PATIENT
  Age: 38 Year
  Sex: Female
  Weight: 81.63 kg

DRUGS (4)
  1. DILANTIN [Suspect]
     Active Substance: PHENYTOIN
     Indication: INJURY
     Dosage: 200 MG, 1X/DAY (TAKE 2 CAPS BY MOUTH ONCE DAILY)
     Route: 048
     Dates: start: 20190710
  2. VITAMIN D [COLECALCIFEROL] [Concomitant]
     Active Substance: CHOLECALCIFEROL
     Indication: ARTIFICIAL MENOPAUSE
     Dosage: UNK
  3. DILANTIN [Suspect]
     Active Substance: PHENYTOIN
     Indication: EPILEPSY
     Dosage: 200 MG, DAILY, (TWO CAPSULE BY MOUTH EVERY DAY)
     Route: 048
     Dates: start: 1997
  4. DILANTIN [Suspect]
     Active Substance: PHENYTOIN
     Indication: GENERALISED TONIC-CLONIC SEIZURE

REACTIONS (6)
  - Feeling abnormal [Unknown]
  - Photosensitivity reaction [Unknown]
  - Nausea [Unknown]
  - Blister [Unknown]
  - Rash [Recovering/Resolving]
  - Somnolence [Unknown]

NARRATIVE: CASE EVENT DATE: 20190606
